FAERS Safety Report 15131445 (Version 2)
Quarter: 2019Q2

REPORT INFORMATION
  Report Type: Spontaneous
  Country: US (occurrence: US)
  Receive Date: 20180711
  Receipt Date: 20190418
  Transmission Date: 20190711
  Serious: Yes (Hospitalization)
  Sender: FDA-Public Use
  Company Number: US-PFIZER INC-2018275553

PATIENT
  Age: 75 Year
  Sex: Male
  Weight: 72 kg

DRUGS (4)
  1. LYRICA [Suspect]
     Active Substance: PREGABALIN
     Indication: BACK PAIN
  2. LYRICA [Suspect]
     Active Substance: PREGABALIN
     Indication: PARAESTHESIA
  3. LYRICA [Suspect]
     Active Substance: PREGABALIN
     Indication: NEUROPATHY PERIPHERAL
  4. LYRICA [Suspect]
     Active Substance: PREGABALIN
     Indication: FIBROMYALGIA
     Dosage: 200 MG, 2X/DAY (ONE AT 8:00 IN THE MORNING AND ONE AT 8:00 AT NIGHT)
     Route: 048
     Dates: start: 20180611

REACTIONS (2)
  - Constipation [Recovered/Resolved]
  - Drug ineffective [Unknown]

NARRATIVE: CASE EVENT DATE: 201806
